FAERS Safety Report 6871902-1 (Version None)
Quarter: 2010Q3

REPORT INFORMATION
  Report Type: 
  Country: None (occurrence: None)
  Receive Date: 20100723
  Receipt Date: 20100715
  Transmission Date: 20110219
  Serious: Yes (Other)
  Sender: FDA-Public Use
  Company Number: US-PFIZER INC-2010089248

PATIENT
  Sex: Female

DRUGS (2)
  1. TOVIAZ [Suspect]
     Dosage: UNK
     Dates: start: 20100501
  2. DETROL [Suspect]
     Dosage: UNK

REACTIONS (1)
  - COELIAC DISEASE [None]
